FAERS Safety Report 14527790 (Version 9)
Quarter: 2019Q1

REPORT INFORMATION
  Report Type: Spontaneous
  Country: US (occurrence: US)
  Receive Date: 20180213
  Receipt Date: 20190129
  Transmission Date: 20190417
  Serious: Yes (Hospitalization)
  Sender: FDA-Public Use
  Company Number: US-ACTELION-A-US2018-167358

PATIENT
  Age: 87 Year
  Sex: Female
  Weight: 53.52 kg

DRUGS (4)
  1. TRACLEER [Suspect]
     Active Substance: BOSENTAN
     Indication: PULMONARY ARTERIAL HYPERTENSION
     Dosage: 125 MG, BID
     Route: 048
  2. ORENITRAM [Concomitant]
     Active Substance: TREPROSTINIL
  3. OXYGEN. [Concomitant]
     Active Substance: OXYGEN
  4. IRON [Suspect]
     Active Substance: IRON
     Indication: PRODUCT USED FOR UNKNOWN INDICATION
     Route: 065

REACTIONS (12)
  - Cyanosis [Unknown]
  - Oxygen therapy [Unknown]
  - Pulmonary hypertension [Unknown]
  - Oedema [Unknown]
  - Headache [Unknown]
  - Oxygen saturation decreased [Unknown]
  - Dyspnoea exertional [Not Recovered/Not Resolved]
  - Diarrhoea [Unknown]
  - Dyspnoea [Unknown]
  - Ulcer haemorrhage [Unknown]
  - Medical procedure [Unknown]
  - Anaemia [Unknown]
